FAERS Safety Report 24869873 (Version 1)
Quarter: 2025Q1

REPORT INFORMATION
  Report Type: Report from Study
  Country: AR (occurrence: AR)
  Receive Date: 20250121
  Receipt Date: 20250121
  Transmission Date: 20250408
  Serious: Yes (Death)
  Sender: ALNYLAM PHARMACEUTICALS
  Company Number: AR-ALNYLAM PHARMACEUTICALS, INC.-ALN-2025-000424

PATIENT

DRUGS (2)
  1. ONPATTRO [Suspect]
     Active Substance: PATISIRAN SODIUM
     Indication: Hereditary neuropathic amyloidosis
     Dosage: 3 VIALS (10MG/5ML), Q3W (EVERY 21 DAYS)
     Route: 065
     Dates: start: 20231005, end: 20231005
  2. ONPATTRO [Suspect]
     Active Substance: PATISIRAN SODIUM
     Dosage: 3 VIALS (10MG/5ML), Q3W (EVERY 21 DAYS)
     Route: 065
     Dates: start: 20240202, end: 20240202

REACTIONS (1)
  - Death [Fatal]

NARRATIVE: CASE EVENT DATE: 20250116
